FAERS Safety Report 4453908-5 (Version None)
Quarter: 2004Q3

REPORT INFORMATION
  Report Type: 
  Country: None (occurrence: None)
  Receive Date: 20040826
  Receipt Date: 20040429
  Transmission Date: 20050211
  Serious: No
  Sender: FDA-Public Use
  Company Number: WAES 0404USA02584

PATIENT
  Sex: Female

DRUGS (3)
  1. ZETIA [Suspect]
     Dosage: 10 MG/DAILY/PO
     Route: 048
  2. MOBIC [Concomitant]
  3. NORFLEX [Concomitant]

REACTIONS (1)
  - EYE REDNESS [None]
